FAERS Safety Report 17354351 (Version 1)
Quarter: 2020Q1

REPORT INFORMATION
  Report Type: Spontaneous
  Country: DE (occurrence: DE)
  Receive Date: 20200131
  Receipt Date: 20200131
  Transmission Date: 20200409
  Serious: Yes (Other)
  Sender: FDA-Public Use
  Company Number: DE-TEVA-2020-DE-1175851

PATIENT
  Age: 79 Year
  Sex: Female

DRUGS (4)
  1. CIPROHEXAL (CIPROFLOXACIN) [Suspect]
     Active Substance: CIPROFLOXACIN
     Route: 048
  2. AMOXICLAVULAN 875/125 [Suspect]
     Active Substance: AMOXICILLIN\CLAVULANIC ACID
     Route: 048
  3. COTRIM FORTE-RATIOPHARM 960 MG TABLETTEN [Suspect]
     Active Substance: SULFAMETHOXAZOLE\TRIMETHOPRIM
     Indication: CYSTITIS NONINFECTIVE
     Dosage: 1 DF CONTAINS: 800 MG SULFAMETHOXAZOLE AND 160 MG TRIMETHOPRIM; INTAKE 2 DF^S ONCE SO FAR
     Route: 048
     Dates: start: 20190802
  4. FOSFOMYCIN [Suspect]
     Active Substance: FOSFOMYCIN
     Route: 048

REACTIONS (1)
  - Clostridial infection [Unknown]

NARRATIVE: CASE EVENT DATE: 201910
